FAERS Safety Report 8820499 (Version 1)
Quarter: 2012Q4

REPORT INFORMATION
  Report Type: 
  Country: DE (occurrence: DE)
  Receive Date: 20121002
  Receipt Date: 20121002
  Transmission Date: 20130627
  Serious: Yes (Hospitalization, Congenital Anomaly)
  Sender: FDA-Public Use
  Company Number: DE-SANOFI-AVENTIS-2012SA072104

PATIENT
  Age: 0 Day
  Sex: Male
  Weight: 1.82 kg

DRUGS (15)
  1. OXALIPLATIN [Suspect]
     Indication: METASTATIC COLON CANCER
     Route: 064
     Dates: start: 20110817, end: 20110817
  2. OXALIPLATIN [Suspect]
     Indication: METASTATIC COLON CANCER
     Route: 064
     Dates: start: 20111027, end: 20111027
  3. 5-FU [Suspect]
     Indication: METASTATIC COLON CANCER
     Route: 064
     Dates: start: 20110817, end: 20110817
  4. 5-FU [Suspect]
     Indication: METASTATIC COLON CANCER
     Route: 064
     Dates: start: 20111027, end: 20111027
  5. FOLINIC ACID [Suspect]
     Indication: METASTATIC COLON CANCER
     Route: 064
     Dates: start: 20110817, end: 20110817
  6. FOLINIC ACID [Suspect]
     Indication: METASTATIC COLON CANCER
     Route: 064
     Dates: start: 20111027, end: 20111027
  7. FORTECORTIN [Concomitant]
     Indication: CHEMOTHERAPY ANTIEMETIC PROPHYLAXIS
     Dosage: 16 [mg/d ]/ 2 x 8 mg/d
     Route: 064
     Dates: start: 20110817, end: 20111027
  8. ZOFRAN ZYDIS LINGUAL [Concomitant]
     Indication: NAUSEA POST CHEMOTHERAPY
     Dosage: 8 [mg/d ]
     Route: 064
     Dates: start: 20110817, end: 20111027
  9. PASPERTIN [Concomitant]
     Indication: NAUSEA POST CHEMOTHERAPY
     Dosage: 40 [mg/d (2x20) ]
     Route: 064
     Dates: start: 20110818, end: 20111108
  10. NEXIUM /UNK/ [Concomitant]
     Indication: GASTRITIS PROPHYLAXIS
     Dosage: 20 [mg/d 1-0-0 ]
     Route: 064
     Dates: start: 20110817, end: 20111026
  11. L-THYROXIN [Concomitant]
     Indication: HASHIMOTO^S THYROIDITIS
     Dosage: 42.75 [?g/d ]/ 35.5 ?g and 50 ?g alternately (started with 25 ?g/d)
     Route: 064
     Dates: start: 20110831, end: 20111108
  12. SELENIUM [Concomitant]
     Indication: HASHIMOTO^S THYROIDITIS
     Dosage: 200 [?g/d ]
     Route: 064
     Dates: start: 20110831, end: 20111108
  13. FENISTIL [Concomitant]
     Indication: ALLERGY
     Route: 064
     Dates: start: 2011, end: 2011
  14. UTROGEST [Concomitant]
     Indication: THREATENED ABORTION
     Dosage: 200 [mg/d ]
     Route: 064
     Dates: start: 2011, end: 2011
  15. FOLIC ACID [Concomitant]
     Indication: PROPHYLAXIS OF NEURAL TUBE DEFECT
     Route: 064
     Dates: start: 20110331

REACTIONS (12)
  - Right ventricular hypertrophy [Unknown]
  - Foetal exposure timing unspecified [Unknown]
  - Tricuspid valve incompetence [Unknown]
  - Ductus arteriosus premature closure [Recovered/Resolved with Sequelae]
  - Hypokinesia [Unknown]
  - Bradycardia neonatal [Unknown]
  - Neonatal infection [Unknown]
  - Feeding disorder neonatal [Unknown]
  - Hyperbilirubinaemia neonatal [Unknown]
  - Hypertension neonatal [Unknown]
  - Pulmonary artery stenosis congenital [Unknown]
  - Atrial septal defect [Recovered/Resolved]
